FAERS Safety Report 23382735 (Version 1)
Quarter: 2024Q1

REPORT INFORMATION
  Report Type: Spontaneous
  Country: CN (occurrence: CN)
  Receive Date: 20240109
  Receipt Date: 20240109
  Transmission Date: 20240409
  Serious: Yes (Hospitalization, Other)
  Sender: FDA-Public Use
  Company Number: CN-PFIZER INC-PV202400001466

PATIENT
  Age: 7 Year
  Sex: Male
  Weight: 20 kg

DRUGS (7)
  1. CYTARABINE [Suspect]
     Active Substance: CYTARABINE
     Indication: Precursor T-lymphoblastic lymphoma/leukaemia
     Dosage: Q12H, D1-2, FOR A TOTAL OF 4 TIMES
     Route: 041
     Dates: start: 20231031, end: 20231101
  2. CYTARABINE [Suspect]
     Active Substance: CYTARABINE
     Dosage: D5
     Route: 037
     Dates: start: 20231104, end: 20231104
  3. METHOTREXATE SODIUM [Suspect]
     Active Substance: METHOTREXATE SODIUM
     Indication: Prophylactic chemotherapy
     Dosage: D5
     Dates: start: 20231104, end: 20231104
  4. ETOPOSIDE [Suspect]
     Active Substance: ETOPOSIDE
     Indication: Precursor T-lymphoblastic lymphoma/leukaemia
     Dosage: Q12H, D3-5, FOR A TOTAL OF 5 TIMES
     Route: 041
     Dates: start: 20231102, end: 20231104
  5. PEGASPARGASE [Suspect]
     Active Substance: PEGASPARGASE
     Indication: Precursor T-lymphoblastic lymphoma/leukaemia
     Dosage: 2500U/M2, D6
     Route: 030
     Dates: start: 20231105, end: 20231105
  6. DEXAMETHASONE [Suspect]
     Active Substance: DEXAMETHASONE
     Indication: Precursor T-lymphoblastic lymphoma/leukaemia
     Dosage: 20 MG/(M2.D), ORAL OR INTRAVENOUS DRIP
     Dates: start: 20231031, end: 20231104
  7. DEXAMETHASONE [Suspect]
     Active Substance: DEXAMETHASONE
     Dosage: D5
     Route: 037
     Dates: start: 20231104, end: 20231104

REACTIONS (7)
  - Myelosuppression [Recovering/Resolving]
  - Escherichia bacteraemia [Unknown]
  - Decreased appetite [Unknown]
  - Nausea [Unknown]
  - Pyrexia [Recovered/Resolved]
  - Febrile infection [Recovered/Resolved]
  - Groin pain [Unknown]

NARRATIVE: CASE EVENT DATE: 20231106
